FAERS Safety Report 7068830-8 (Version None)
Quarter: 2010Q4

REPORT INFORMATION
  Report Type: 
  Country: None (occurrence: None)
  Receive Date: 20101028
  Receipt Date: 20101020
  Transmission Date: 20110411
  Serious: Yes (Other)
  Sender: FDA-Public Use
  Company Number: JP-MERCK-1010USA02793

PATIENT
  Age: 51 Year
  Sex: Female

DRUGS (1)
  1. PEPCID [Suspect]
     Route: 065
     Dates: start: 20090301, end: 20090301

REACTIONS (1)
  - LIVER DISORDER [None]
